FAERS Safety Report 25868987 (Version 1)
Quarter: 2025Q4

REPORT INFORMATION
  Report Type: Spontaneous
  Country: CN (occurrence: CN)
  Receive Date: 20251001
  Receipt Date: 20251001
  Transmission Date: 20260118
  Serious: Yes (Hospitalization)
  Sender: ASTELLAS
  Company Number: CN-ASTELLAS-2025-AER-053006

PATIENT
  Age: 67 Year
  Sex: Female

DRUGS (3)
  1. PADCEV [Suspect]
     Active Substance: ENFORTUMAB VEDOTIN-EJFV
     Indication: Transitional cell carcinoma
     Dosage: EACH CYCLE ADMINISTRATION ON DAY 1 AND DAY 8 30 MG AND 20 MG
     Route: 065
     Dates: start: 202507
  2. PADCEV [Suspect]
     Active Substance: ENFORTUMAB VEDOTIN-EJFV
     Indication: Transitional cell carcinoma
     Dosage: EACH CYCLE ADMINISTRATION ON DAY 1 AND DAY 8 30 MG AND 20 MG
     Route: 065
     Dates: start: 202507
  3. PEMBROLIZUMAB [Concomitant]
     Active Substance: PEMBROLIZUMAB
     Indication: Transitional cell carcinoma
     Dosage: ONGOING
     Route: 065
     Dates: start: 202507

REACTIONS (4)
  - Functional gastrointestinal disorder [Unknown]
  - Neuralgia [Unknown]
  - Back pain [Unknown]
  - Pain in extremity [Unknown]

NARRATIVE: CASE EVENT DATE: 20250101
